FAERS Safety Report 22585316 (Version 7)
Quarter: 2023Q4

REPORT INFORMATION
  Report Type: Report from Study
  Country: US (occurrence: US)
  Receive Date: 20230610
  Receipt Date: 20231012
  Transmission Date: 20240110
  Serious: Yes (Hospitalization, Other)
  Sender: FDA-Public Use
  Company Number: US-002147023-NVSC2023US130387

PATIENT
  Sex: Female

DRUGS (1)
  1. ENTRESTO [Suspect]
     Active Substance: SACUBITRIL\VALSARTAN
     Indication: Product used for unknown indication
     Dosage: 1 DOSAGE FORM, BID (24/26 MG)
     Route: 048
     Dates: start: 2023

REACTIONS (16)
  - Cardiac failure [Unknown]
  - Fluid retention [Unknown]
  - Chest pain [Unknown]
  - Back pain [Unknown]
  - Hiatus hernia [Unknown]
  - Vomiting [Unknown]
  - Movement disorder [Unknown]
  - Illness [Unknown]
  - Depression [Unknown]
  - Pollakiuria [Unknown]
  - Dyspnoea [Unknown]
  - Vision blurred [Not Recovered/Not Resolved]
  - Eyelid margin crusting [Unknown]
  - Weight fluctuation [Unknown]
  - Inappropriate schedule of product administration [Unknown]
  - Drug ineffective [Unknown]
